FAERS Safety Report 5477021-3 (Version None)
Quarter: 2007Q4

REPORT INFORMATION
  Report Type: 
  Country: None (occurrence: None)
  Receive Date: 20071002
  Receipt Date: 20071002
  Transmission Date: 20080405
  Serious: Yes (Other)
  Sender: FDA-Public Use
  Company Number: None

PATIENT
  Sex: Female
  Weight: 74.3899 kg

DRUGS (3)
  1. EFFEXOR XR [Suspect]
     Indication: HOT FLUSH
     Dosage: 1 CAPSULE DAILY PO
     Route: 048
     Dates: start: 20050530, end: 20070828
  2. EFFEXOR XR [Suspect]
     Indication: MENOPAUSAL SYMPTOMS
     Dosage: 1 CAPSULE DAILY PO
     Route: 048
     Dates: start: 20050530, end: 20070828
  3. EFFEXOR XR [Suspect]
     Indication: MOOD SWINGS
     Dosage: 1 CAPSULE DAILY PO
     Route: 048
     Dates: start: 20050530, end: 20070828

REACTIONS (9)
  - ANXIETY [None]
  - DIZZINESS [None]
  - DRUG WITHDRAWAL SYNDROME [None]
  - HEADACHE [None]
  - MOOD SWINGS [None]
  - MYALGIA [None]
  - NAUSEA [None]
  - PARAESTHESIA [None]
  - SUICIDAL IDEATION [None]
